FAERS Safety Report 6092127-6 (Version None)
Quarter: 2009Q1

REPORT INFORMATION
  Report Type: 
  Country: None (occurrence: None)
  Receive Date: 20090219
  Receipt Date: 20081021
  Transmission Date: 20090719
  Serious: No
  Sender: FDA-Public Use
  Company Number: WAES 0807USA04750

PATIENT
  Age: 69 Year
  Sex: Female
  Weight: 48.0813 kg

DRUGS (6)
  1. JANUVIA [Suspect]
     Indication: TYPE 2 DIABETES MELLITUS
     Dosage: 100 MG/DAILY/PO
     Route: 048
     Dates: start: 20080719, end: 20080721
  2. AMBIEN [Concomitant]
  3. BEANO [Concomitant]
  4. NEXIUM [Concomitant]
  5. CHARCOAL, ACTIVATED [Concomitant]
  6. RANITIDINE [Concomitant]

REACTIONS (2)
  - NAUSEA [None]
  - TREMOR [None]
